FAERS Safety Report 5821722-1 (Version None)
Quarter: 2008Q3

REPORT INFORMATION
  Report Type: 
  Country: None (occurrence: None)
  Receive Date: 20080724
  Receipt Date: 20080715
  Transmission Date: 20090109
  Serious: Yes (Hospitalization)
  Sender: FDA-Public Use
  Company Number: CN-PFIZER INC-2008058691

PATIENT
  Age: 47 Year
  Sex: Male

DRUGS (6)
  1. ATORVASTATIN CALCIUM [Suspect]
     Indication: LIPID METABOLISM DISORDER
     Route: 048
     Dates: start: 20070901, end: 20071201
  2. CLOPIDOGREL [Concomitant]
     Indication: CARDIOVASCULAR EVENT PROPHYLAXIS
     Route: 048
  3. CLOPIDOGREL [Concomitant]
     Indication: ANTICOAGULANT THERAPY
  4. BISOPROLOL FUMARATE [Concomitant]
     Indication: BLOOD PRESSURE
     Route: 048
  5. BISOPROLOL FUMARATE [Concomitant]
     Indication: CARDIOVASCULAR EVENT PROPHYLAXIS
  6. ACETYLSALICYLIC ACID SRT [Concomitant]
     Indication: ANTICOAGULANT THERAPY
     Route: 048

REACTIONS (2)
  - HEPATITIS B [None]
  - HYPOTENSION [None]
